FAERS Safety Report 6332830-3 (Version None)
Quarter: 2009Q3

REPORT INFORMATION
  Report Type: 
  Country: None (occurrence: None)
  Receive Date: 20090828
  Receipt Date: 20090817
  Transmission Date: 20100115
  Serious: Yes (Hospitalization, Other)
  Sender: FDA-Public Use
  Company Number: US-WATSON-2009-05692

PATIENT
  Age: 43 Year
  Sex: Female
  Weight: 63.492 kg

DRUGS (7)
  1. INFED [Suspect]
     Indication: IRON DEFICIENCY ANAEMIA
     Dosage: 1000 MG, OVER 2 HOURS (25 MG TEST, 975 MG)
     Route: 042
     Dates: start: 20080919, end: 20080919
  2. INFED [Suspect]
     Dosage: 1000 MG, OVER 2 HOURS (25 MG TEST, 975 MG)
     Route: 042
     Dates: start: 20080919, end: 20080919
  3. INFED [Suspect]
     Dosage: 1000 MG, OVER 2 HOURS (25 MG TEST, 975 MG)
     Route: 042
     Dates: start: 20080919, end: 20080919
  4. INFED [Suspect]
     Dosage: 1000 MG, OVER 2 HOURS (25 MG TEST, 975 MG)
     Route: 042
     Dates: start: 20060720, end: 20060720
  5. INFED [Suspect]
     Dosage: 1000 MG, OVER 2 HOURS (25 MG TEST, 975 MG)
     Route: 042
     Dates: start: 20050928, end: 20050928
  6. RESTORIL                           /00393701/ [Concomitant]
     Indication: DRUG USE FOR UNKNOWN INDICATION
     Dosage: 1 CAPSULE AT BEDTIME
     Route: 048
     Dates: start: 20081001
  7. IBUPROFEN [Concomitant]
     Indication: BONE PAIN
     Dosage: 200 MG, PRN
     Route: 048
     Dates: start: 20081001

REACTIONS (25)
  - BALANCE DISORDER [None]
  - BONE PAIN [None]
  - CHEST DISCOMFORT [None]
  - COGNITIVE DISORDER [None]
  - DIPLOPIA [None]
  - DISORIENTATION [None]
  - DISTURBANCE IN ATTENTION [None]
  - DYSPNOEA [None]
  - EYE PAIN [None]
  - FATIGUE [None]
  - GAIT DISTURBANCE [None]
  - HAEMOSIDEROSIS [None]
  - HEADACHE [None]
  - HEPATIC SIDEROSIS [None]
  - HYPOAESTHESIA [None]
  - MEMORY IMPAIRMENT [None]
  - MENINGITIS ASEPTIC [None]
  - MUSCULAR WEAKNESS [None]
  - NAUSEA [None]
  - NERVOUS SYSTEM DISORDER [None]
  - OROPHARYNGEAL PAIN [None]
  - PAIN IN EXTREMITY [None]
  - PALPITATIONS [None]
  - VISION BLURRED [None]
  - VISUAL ACUITY REDUCED [None]
